FAERS Safety Report 8756927 (Version 7)
Quarter: 2013Q3

REPORT INFORMATION
  Report Type: Report from Study
  Country: CA (occurrence: CA)
  Receive Date: 20120828
  Receipt Date: 20130913
  Transmission Date: 20140515
  Serious: Yes (Other)
  Sender: FDA-Public Use
  Company Number: CA-BRISTOL-MYERS SQUIBB COMPANY-16828576

PATIENT
  Age: 67 Year
  Sex: Female

DRUGS (3)
  1. ORENCIA FOR INJ [Suspect]
     Indication: RHEUMATOID ARTHRITIS
     Dosage: LAST DOSE 3JUL12, 21SEP12?INF:9 EXP-APR15?RESTAR11DEC12?2K74506-EXP-JL15?3C81662;SEP-15
     Route: 042
     Dates: start: 20120216
  2. PREDNISONE [Suspect]
  3. CELEBREX [Concomitant]

REACTIONS (6)
  - Lower respiratory tract infection [Recovered/Resolved]
  - Haemoptysis [Unknown]
  - Lung infection [Unknown]
  - Arthralgia [Not Recovered/Not Resolved]
  - Sinusitis [Recovered/Resolved]
  - Bronchitis chronic [Unknown]
